FAERS Safety Report 5333157-9 (Version None)
Quarter: 2007Q2

REPORT INFORMATION
  Report Type: 
  Country: None (occurrence: None)
  Receive Date: 20070524
  Receipt Date: 20070516
  Transmission Date: 20071010
  Serious: Yes (Other)
  Sender: FDA-Public Use
  Company Number: PHRM2007FR01468

PATIENT
  Sex: Female

DRUGS (2)
  1. AVASTIN [Concomitant]
     Dates: start: 20070401
  2. ZOMETA [Suspect]
     Indication: METASTASES TO BONE
     Dosage: 4 MG, QMO
     Route: 042
     Dates: start: 20060501

REACTIONS (3)
  - DENTAL CARE [None]
  - IMPAIRED HEALING [None]
  - OSTEONECROSIS [None]
